FAERS Safety Report 6684494-7 (Version None)
Quarter: 2010Q2

REPORT INFORMATION
  Report Type: 
  Country: None (occurrence: None)
  Receive Date: 20100416
  Receipt Date: 20100402
  Transmission Date: 20101027
  Serious: Yes (Life-Threatening, Hospitalization, Other)
  Sender: FDA-Public Use
  Company Number: AT-MEDIMMUNE-MEDI-0011041

PATIENT
  Sex: Female
  Weight: 6.1 kg

DRUGS (4)
  1. SYNAGIS [Suspect]
     Route: 030
     Dates: start: 20100128, end: 20100222
  2. SYNAGIS [Suspect]
     Route: 030
     Dates: start: 20100402
  3. NITRAZEPAM [Concomitant]
  4. CLONIDINE [Concomitant]

REACTIONS (1)
  - RESPIRATORY SYNCYTIAL VIRUS INFECTION [None]
